FAERS Safety Report 9272406 (Version 1)
Quarter: 2013Q2

REPORT INFORMATION
  Report Type: Spontaneous
  Country: US (occurrence: US)
  Receive Date: 20130506
  Receipt Date: 20130506
  Transmission Date: 20140414
  Serious: No
  Sender: FDA-Public Use
  Company Number: US-ASTRAZENECA-2012SE95093

PATIENT
  Sex: Female

DRUGS (3)
  1. PRILOSEC OTC [Suspect]
     Dosage: A HALF OF UNSPECIFIED DOSE EVERY OTHER DAY
     Route: 048
  2. SYNTHROID [Concomitant]
     Dosage: UNKNOWN
  3. OCUVITE [Concomitant]
     Dosage: UNKNOWN

REACTIONS (2)
  - Blood potassium increased [Not Recovered/Not Resolved]
  - Intentional drug misuse [Unknown]
